FAERS Safety Report 17673474 (Version 1)
Quarter: 2020Q2

REPORT INFORMATION
  Report Type: Spontaneous
  Country: US (occurrence: US)
  Receive Date: 20200415
  Receipt Date: 20200415
  Transmission Date: 20200713
  Serious: Yes (Other)
  Sender: FDA-Public Use
  Company Number: US-009507513-2004USA002171

PATIENT
  Sex: Female
  Weight: 89.3 kg

DRUGS (23)
  1. RYTARY [Suspect]
     Active Substance: CARBIDOPA\LEVODOPA
     Dosage: 3 CAPSULES, 2X/DAY
     Route: 048
  2. CARBIDOPA (+) LEVODOPA [Suspect]
     Active Substance: CARBIDOPA\LEVODOPA
     Dosage: 1 TABLET, AS NEEDED
     Route: 048
  3. SYNTHROID [Concomitant]
     Active Substance: LEVOTHYROXINE SODIUM
     Dosage: UNK
     Route: 048
     Dates: start: 1989, end: 201912
  4. SYNTHROID [Concomitant]
     Active Substance: LEVOTHYROXINE SODIUM
     Dosage: UNK
     Route: 048
     Dates: start: 201912
  5. ROPINIROLE. [Concomitant]
     Active Substance: ROPINIROLE
     Route: 048
  6. CETIRIZINE HYDROCHLORIDE. [Concomitant]
     Active Substance: CETIRIZINE HYDROCHLORIDE
  7. MIRALAX [Concomitant]
     Active Substance: POLYETHYLENE GLYCOL 3350
  8. AMANTADINE. [Suspect]
     Active Substance: AMANTADINE HYDROCHLORIDE
     Dosage: 274 MG, 1X/DAY AT BEDTIME
     Route: 048
  9. KEFLEX [Suspect]
     Active Substance: CEPHALEXIN
     Indication: INFECTED CYST
     Dosage: UNK UNK, CYCLICAL
     Route: 048
     Dates: start: 201808, end: 2018
  10. BENZONATATE. [Suspect]
     Active Substance: BENZONATATE
     Indication: COUGH
     Dosage: 200 MILLIGRAM, 3X/DAY
     Route: 048
     Dates: start: 201904, end: 201904
  11. CLONAZEPAM. [Concomitant]
     Active Substance: CLONAZEPAM
     Route: 048
  12. IBUPROFEN. [Concomitant]
     Active Substance: IBUPROFEN
     Route: 048
  13. QUANTUM HEALTH MIGRALIEF [Concomitant]
     Dosage: UNK
     Route: 048
     Dates: end: 2019
  14. CARBIDOPA (+) LEVODOPA [Suspect]
     Active Substance: CARBIDOPA\LEVODOPA
     Dosage: 1 TABLET/DAY AT BEDTIME
     Route: 048
  15. AMANTADINE. [Suspect]
     Active Substance: AMANTADINE HYDROCHLORIDE
     Indication: DYSKINESIA
     Dosage: 137 MG, 1X/DAY AT BEDTIME
     Route: 048
     Dates: start: 20180518
  16. AMANTADINE. [Suspect]
     Active Substance: AMANTADINE HYDROCHLORIDE
     Dosage: 274 MG, 1X/DAY AT BEDTIME
     Route: 048
  17. CIPRO [Suspect]
     Active Substance: CIPROFLOXACIN HYDROCHLORIDE
     Indication: FUNGAL INFECTION
     Dosage: UNK
     Route: 048
     Dates: start: 201808, end: 201809
  18. MUCINEX [Suspect]
     Active Substance: GUAIFENESIN
     Dosage: UNK
  19. AMANTADINE. [Suspect]
     Active Substance: AMANTADINE HYDROCHLORIDE
     Dosage: 137 MG, 1X/DAY AT BEDTIME
     Route: 048
  20. CIPRO [Suspect]
     Active Substance: CIPROFLOXACIN HYDROCHLORIDE
     Indication: URINARY TRACT INFECTION
  21. RYTARY [Suspect]
     Active Substance: CARBIDOPA\LEVODOPA
     Dosage: 4 CAPSULES, 1X/DAY
     Route: 048
  22. VITAMINS (UNSPECIFIED) [Concomitant]
     Active Substance: VITAMINS
     Route: 048
  23. MAGNESIUM (UNSPECIFIED) [Concomitant]
     Active Substance: MAGNESIUM
     Dosage: UNK
     Route: 048
     Dates: end: 2019

REACTIONS (21)
  - Therapeutic response shortened [Unknown]
  - Constipation [Not Recovered/Not Resolved]
  - Muscular weakness [Recovered/Resolved]
  - Rash [Recovering/Resolving]
  - Peripheral swelling [Not Recovered/Not Resolved]
  - Urinary tract infection [Recovered/Resolved]
  - Cough [Recovering/Resolving]
  - Nausea [Not Recovered/Not Resolved]
  - Malaise [Recovered/Resolved]
  - Vascular rupture [Not Recovered/Not Resolved]
  - Infected cyst [Recovered/Resolved]
  - Fungal infection [Recovered/Resolved]
  - Hallucination, visual [Recovered/Resolved]
  - Dehydration [Recovered/Resolved]
  - Livedo reticularis [Not Recovered/Not Resolved]
  - Pain in extremity [Recovered/Resolved]
  - Abdominal pain upper [Recovered/Resolved]
  - Movement disorder [Not Recovered/Not Resolved]
  - Gait disturbance [Not Recovered/Not Resolved]
  - Skin discolouration [Recovered/Resolved]
  - Conjunctivitis [Recovered/Resolved]

NARRATIVE: CASE EVENT DATE: 2018
